FAERS Safety Report 20489323 (Version 1)
Quarter: 2022Q1

REPORT INFORMATION
  Report Type: Report from Study
  Country: US (occurrence: None)
  Receive Date: 20220218
  Receipt Date: 20220218
  Transmission Date: 20220423
  Serious: Yes (Life-Threatening)
  Sender: FDA-Public Use
  Company Number: 2022A076251

PATIENT
  Sex: Male

DRUGS (1)
  1. LYNPARZA [Suspect]
     Active Substance: OLAPARIB
     Indication: Chronic lymphocytic leukaemia
     Route: 048

REACTIONS (4)
  - White blood cell count abnormal [Recovering/Resolving]
  - Blood test abnormal [Recovering/Resolving]
  - Diarrhoea [Unknown]
  - Product use issue [Unknown]
